FAERS Safety Report 8537855-5 (Version None)
Quarter: 2012Q3

REPORT INFORMATION
  Report Type: 
  Country: None (occurrence: None)
  Receive Date: 20120725
  Receipt Date: 20120717
  Transmission Date: 20120928
  Serious: Yes (Hospitalization, Other)
  Sender: FDA-Public Use
  Company Number: US-CELGENEUS-163-21880-12053384

PATIENT
  Sex: Male
  Weight: 86.169 kg

DRUGS (11)
  1. REVLIMID [Suspect]
     Indication: MULTIPLE MYELOMA
     Dosage: 10 MILLIGRAM
     Route: 048
     Dates: start: 20120515
  2. PLAQUENIL [Concomitant]
     Route: 065
  3. SYNTHROID [Concomitant]
     Dosage: 100 MICROGRAM
     Route: 065
  4. HYDROCHLOROTHIAZIDE [Concomitant]
     Dosage: 25 MILLIGRAM
     Route: 065
  5. VITAMIN B-12 [Concomitant]
     Dosage: 100 MICROGRAM
     Route: 065
     Dates: start: 20120619
  6. VITAMIN D [Concomitant]
     Dosage: 1000 MILLIGRAM
     Route: 065
  7. LISINOPRIL [Concomitant]
     Route: 065
  8. ALLOPURINOL [Concomitant]
     Dosage: 100 MILLIGRAM
     Route: 065
  9. VELCADE [Concomitant]
     Route: 065
  10. DEXAMETHASONE [Concomitant]
     Dosage: 20 MILLIGRAM
     Route: 065
     Dates: start: 20120501
  11. VALTREX [Concomitant]
     Dosage: 500 MILLIGRAM
     Route: 065

REACTIONS (4)
  - ANAEMIA [None]
  - RASH GENERALISED [None]
  - SERUM SICKNESS [None]
  - RENAL FAILURE ACUTE [None]
